FAERS Safety Report 26075025 (Version 1)
Quarter: 2025Q4

REPORT INFORMATION
  Report Type: Other
  Country: US (occurrence: US)
  Receive Date: 20251121
  Receipt Date: 20251121
  Transmission Date: 20260117
  Serious: No
  Sender: VERASTEM
  Company Number: US-VERASTEM-250818US-AFCPK-00467

PATIENT

DRUGS (1)
  1. AVMAPKI FAKZYNJA CO-PACK [Suspect]
     Active Substance: AVUTOMETINIB POTASSIUM\DEFACTINIB HYDROCHLORIDE
     Indication: Ovarian cancer
     Dosage: TAKIE AS DIRECTED PER DOSING CARD
     Route: 048
     Dates: start: 20250728, end: 20250817

REACTIONS (4)
  - Muscular weakness [Unknown]
  - Grip strength decreased [Unknown]
  - Neuropathy peripheral [Unknown]
  - Blood creatine phosphokinase increased [Unknown]
